FAERS Safety Report 24623138 (Version 1)
Quarter: 2024Q4

REPORT INFORMATION
  Report Type: Spontaneous
  Country: US (occurrence: US)
  Receive Date: 20241115
  Receipt Date: 20241115
  Transmission Date: 20250114
  Serious: No
  Sender: AMGEN
  Company Number: US-AMGEN-USASP2024224299

PATIENT
  Sex: Male

DRUGS (1)
  1. RAVICTI [Suspect]
     Active Substance: GLYCEROL PHENYLBUTYRATE
     Indication: Ornithine transcarbamoylase deficiency
     Dosage: 1.1 GRAM PER MILLILITRE, TID TAKE 1 ML BY MOUTH THREE TIMES DAILY
     Route: 048
     Dates: start: 20241025

REACTIONS (1)
  - Fatigue [Unknown]
